FAERS Safety Report 10081794 (Version 1)
Quarter: 2014Q2

REPORT INFORMATION
  Report Type: Report from Study
  Country: CO (occurrence: CO)
  Receive Date: 20140416
  Receipt Date: 20140416
  Transmission Date: 20141212
  Serious: Yes (Hospitalization)
  Sender: FDA-Public Use
  Company Number: CO-SA-2014SA042682

PATIENT
  Age: 57 Year
  Sex: Female

DRUGS (1)
  1. INSULIN GLARGINE [Suspect]
     Indication: DIABETES MELLITUS
     Dosage: DOSE:13 UNIT(S)
     Route: 058
     Dates: start: 201401

REACTIONS (2)
  - Fracture [Recovering/Resolving]
  - Fall [Unknown]
